FAERS Safety Report 5811593-1 (Version None)
Quarter: 2008Q3

REPORT INFORMATION
  Report Type: 
  Country: None (occurrence: None)
  Receive Date: 20080714
  Receipt Date: 20080701
  Transmission Date: 20090109
  Serious: Yes (Hospitalization, Other)
  Sender: FDA-Public Use
  Company Number: THQ2008A01142

PATIENT
  Sex: Female

DRUGS (2)
  1. ZOTON FASTAB (LANSOPRAZOLE) (TABLETS) [Suspect]
     Dosage: 30 MG (30 MG, 1 IN 1 D) PER ORAL
     Route: 048
  2. ACETAMINOPHEN [Concomitant]

REACTIONS (2)
  - CHROMATURIA [None]
  - NONSPECIFIC REACTION [None]
